FAERS Safety Report 8262682 (Version 2)
Quarter: 2013Q3

REPORT INFORMATION
  Report Type: Spontaneous
  Country: US (occurrence: US)
  Receive Date: 20111124
  Receipt Date: 20130723
  Transmission Date: 20140515
  Serious: Yes (Hospitalization, Other)
  Sender: FDA-Public Use
  Company Number: US-AMGEN-USASP2011061568

PATIENT
  Age: 66 Year
  Sex: Male

DRUGS (2)
  1. ENBREL [Suspect]
     Indication: RHEUMATOID ARTHRITIS
     Dosage: 50 MG, QWK
     Route: 065
     Dates: start: 20000307, end: 20130629
  2. CORTICOSTEROIDS [Concomitant]
     Dosage: UNK

REACTIONS (11)
  - Spinal column stenosis [Recovered/Resolved]
  - Cholelithiasis [Recovered/Resolved]
  - Pancreatitis [Recovered/Resolved]
  - Hepatic infection [Recovered/Resolved]
  - Cholecystitis infective [Recovered/Resolved]
  - Urine odour abnormal [Not Recovered/Not Resolved]
  - Back pain [Not Recovered/Not Resolved]
  - Neck pain [Not Recovered/Not Resolved]
  - Osteoporosis [Not Recovered/Not Resolved]
  - Mobility decreased [Not Recovered/Not Resolved]
  - Urinary tract infection [Not Recovered/Not Resolved]
